FAERS Safety Report 9773371 (Version 5)
Quarter: 2014Q1

REPORT INFORMATION
  Report Type: Spontaneous
  Country: AT (occurrence: AT)
  Receive Date: 20131219
  Receipt Date: 20140212
  Transmission Date: 20141002
  Serious: Yes (Hospitalization)
  Sender: FDA-Public Use
  Company Number: PHHY2013AT145983

PATIENT
  Age: 27 Year
  Sex: Female

DRUGS (3)
  1. GILENYA [Suspect]
     Indication: MULTIPLE SCLEROSIS
     Route: 048
     Dates: start: 20131107
  2. ORAL CONTRACEPTIVE NOS [Concomitant]
  3. CORTICOSTEROIDS [Concomitant]

REACTIONS (3)
  - Cerebral venous thrombosis [Recovering/Resolving]
  - Headache [Recovering/Resolving]
  - Diplopia [Recovered/Resolved]
